FAERS Safety Report 14026936 (Version 1)
Quarter: 2017Q3

REPORT INFORMATION
  Report Type: Other
  Country: GB (occurrence: LB)
  Receive Date: 20170929
  Receipt Date: 20170929
  Transmission Date: 20171128
  Serious: Yes (Life-Threatening, Hospitalization, Other)
  Sender: FDA-Public Use
  Company Number: LB-INTERNATIONAL MEDICATION SYSTEMS, LIMITED-2028317

PATIENT
  Age: 35 Year
  Sex: Female

DRUGS (2)
  1. EPINEPHRINE. [Suspect]
     Active Substance: EPINEPHRINE
  2. EPINEPHRINE INJECTION [Suspect]
     Active Substance: EPINEPHRINE
     Indication: HAEMORRHAGE PROPHYLAXIS

REACTIONS (1)
  - Stress cardiomyopathy [Recovering/Resolving]
